FAERS Safety Report 19668721 (Version 1)
Quarter: 2021Q3

REPORT INFORMATION
  Report Type: Spontaneous
  Country: CH (occurrence: CH)
  Receive Date: 20210806
  Receipt Date: 20210806
  Transmission Date: 20211014
  Serious: Yes (Hospitalization, Other)
  Sender: FDA-Public Use
  Company Number: CH-TEVA-2021-CH-1937947

PATIENT
  Age: 57 Year
  Sex: Female

DRUGS (19)
  1. IRFEN [Suspect]
     Active Substance: IBUPROFEN
     Dosage: 400 MG 3X/D (MORNING, NOON, EVENING) PO
     Route: 048
     Dates: start: 20210522
  2. PRIADEL [Interacting]
     Active Substance: LITHIUM
     Dosage: 32.4 MILLIMOL DAILY; 32.4 MMOL 1X/D (EVENING) PO IN RESERVE
     Route: 048
     Dates: end: 20210607
  3. CALCIMAGON?D3 [Concomitant]
     Active Substance: CALCIUM\CHOLECALCIFEROL
  4. ZOLPIDEM [Concomitant]
     Active Substance: ZOLPIDEM TARTRATE
     Dosage: AS NECESSARY ,  PO ON HAND IF INSOMNIA
  5. DAFALGAN [Concomitant]
     Active Substance: ACETAMINOPHEN
  6. CODEINE [Concomitant]
     Active Substance: CODEINE
     Dosage: AS NECESSARY , PO IN RESERVE IF PAIN
  7. TEMESTA [Concomitant]
     Dosage: AS NECESSARY , PO IN RESERVE IF ANXIETY
  8. NICORETTE [Concomitant]
     Active Substance: NICOTINE
     Dosage: AS NECESSARY
  9. NEXIUM MUPS [Concomitant]
     Active Substance: ESOMEPRAZOLE
  10. PURSANA [Concomitant]
     Active Substance: FIG FRUIT OIL\SORBITOL
  11. PALIPERIDONE. [Concomitant]
     Active Substance: PALIPERIDONE
     Dates: start: 20210610
  12. IPRAMOL [Concomitant]
     Active Substance: ALBUTEROL SULFATE\IPRATROPIUM BROMIDE
  13. MOVICOL [Concomitant]
     Active Substance: POLYETHYLENE GLYCOL 3350\POTASSIUM CHLORIDE\SODIUM BICARBONATE\SODIUM CHLORIDE
     Dosage: AS NECESSARY , PO IN RESERVE IF ANXIETY
  14. TROSPIUM [Concomitant]
     Active Substance: TROSPIUM
  15. DAIVOBET [Concomitant]
     Active Substance: BETAMETHASONE DIPROPIONATE\CALCIPOTRIENE
  16. FLAGYL [Concomitant]
     Active Substance: METRONIDAZOLE\METRONIDAZOLE HYDROCHLORIDE
     Route: 067
     Dates: start: 20210608, end: 20210617
  17. LAXOBERON [Concomitant]
     Active Substance: SODIUM PICOSULFATE
  18. SYMBICORT [Concomitant]
     Active Substance: BUDESONIDE\FORMOTEROL FUMARATE DIHYDRATE
  19. FREKA?CLYSS [Concomitant]
     Dosage: AS NECESSARY , RECTAL ON STANDBY IF CONSTIPATION AFTER SUPPLY

REACTIONS (6)
  - Mobility decreased [Unknown]
  - Drug interaction [Unknown]
  - Overdose [Recovering/Resolving]
  - Somnolence [Unknown]
  - Resting tremor [Unknown]
  - Renal impairment [Unknown]

NARRATIVE: CASE EVENT DATE: 202105
